FAERS Safety Report 24556225 (Version 1)
Quarter: 2024Q4

REPORT INFORMATION
  Report Type: Spontaneous
  Country: CN (occurrence: CN)
  Receive Date: 20241028
  Receipt Date: 20241028
  Transmission Date: 20250115
  Serious: Yes (Other)
  Sender: MYLAN
  Company Number: CN-MYLANLABS-2024M1095787

PATIENT
  Age: 82 Year
  Sex: Male
  Weight: 64 kg

DRUGS (4)
  1. LIPITOR [Suspect]
     Active Substance: ATORVASTATIN CALCIUM
     Indication: Gastrointestinal ischaemia
     Dosage: 20 MILLIGRAM, QD (DAILY)
     Route: 048
     Dates: start: 20240524, end: 20240528
  2. LIPITOR [Suspect]
     Active Substance: ATORVASTATIN CALCIUM
     Indication: Gastrointestinal haemorrhage
  3. MOXIFLOXACIN HYDROCHLORIDE [Suspect]
     Active Substance: MOXIFLOXACIN HYDROCHLORIDE
     Indication: Gastrointestinal ischaemia
     Dosage: 0.4 GRAM, QD (DAILY)
     Route: 042
     Dates: start: 20240522, end: 20240528
  4. MOXIFLOXACIN HYDROCHLORIDE [Suspect]
     Active Substance: MOXIFLOXACIN HYDROCHLORIDE
     Indication: Gastrointestinal haemorrhage

REACTIONS (2)
  - Hepatic function abnormal [Recovered/Resolved]
  - Off label use [Unknown]

NARRATIVE: CASE EVENT DATE: 20240528
